FAERS Safety Report 5832699-7 (Version None)
Quarter: 2008Q3

REPORT INFORMATION
  Report Type: 
  Country: None (occurrence: None)
  Receive Date: 20080804
  Receipt Date: 20080804
  Transmission Date: 20090109
  Serious: Yes (Hospitalization)
  Sender: FDA-Public Use
  Company Number: PHEH2000US03003

PATIENT
  Sex: Female
  Weight: 78 kg

DRUGS (3)
  1. NEORAL [Suspect]
     Indication: HEART TRANSPLANT
     Dosage: 100 MG, BID
     Route: 048
     Dates: start: 20000503
  2. AZATHIOPRINE COMP-AZA+ [Suspect]
     Indication: HEART TRANSPLANT
     Dosage: UNK
     Route: 048
     Dates: start: 19990915, end: 20000913
  3. PREDNISONE [Concomitant]

REACTIONS (26)
  - ANGIOPLASTY [None]
  - ATRIOVENTRICULAR BLOCK COMPLETE [None]
  - CARDIAC PACEMAKER INSERTION [None]
  - CATHETER REMOVAL [None]
  - CATHETER SEPSIS [None]
  - CELLULITIS [None]
  - CHILLS [None]
  - DEMYELINATING POLYNEUROPATHY [None]
  - DIARRHOEA [None]
  - ERYTHEMA [None]
  - EXOSTOSIS [None]
  - GUILLAIN-BARRE SYNDROME [None]
  - INTERVERTEBRAL DISC PROTRUSION [None]
  - LOCAL SWELLING [None]
  - MUSCULAR WEAKNESS [None]
  - MYALGIA [None]
  - NAUSEA [None]
  - OEDEMA PERIPHERAL [None]
  - PYREXIA [None]
  - SPINAL COLUMN STENOSIS [None]
  - STAPHYLOCOCCAL SEPSIS [None]
  - SUPERIOR VENA CAVAL OCCLUSION [None]
  - SWELLING FACE [None]
  - VENA CAVA THROMBOSIS [None]
  - VENOUS STENT INSERTION [None]
  - VOMITING [None]
